FAERS Safety Report 4306898-X (Version None)
Quarter: 2004Q1

REPORT INFORMATION
  Report Type: 
  Country: None (occurrence: None)
  Receive Date: 20040227
  Receipt Date: 20040225
  Transmission Date: 20041129
  Serious: Yes (Other)
  Sender: FDA-Public Use
  Company Number: DE-GLAXOSMITHKLINE-D0043239A

PATIENT
  Age: 23 Year
  Sex: Male

DRUGS (8)
  1. CEFUROXIME AXETIL [Suspect]
     Dosage: 6TAB SINGLE DOSE
     Route: 048
  2. OMEPRAZOLE [Suspect]
     Dosage: 15TAB SINGLE DOSE
     Route: 048
  3. DICLAC [Suspect]
     Dosage: 10TAB SINGLE DOSE
     Route: 048
  4. SUPRAX [Suspect]
     Dosage: 5TAB SINGLE DOSE
     Route: 048
  5. PARACETAMOL [Suspect]
     Dosage: 3TAB SINGLE DOSE
     Route: 048
  6. SINUPRET [Suspect]
     Dosage: 10TAB SINGLE DOSE
     Route: 048
  7. ALCOHOL [Suspect]
     Route: 048
  8. UNSPECIFIED DRUG [Suspect]
     Dosage: 10TAB SINGLE DOSE
     Route: 048

REACTIONS (3)
  - MULTIPLE DRUG OVERDOSE [None]
  - NO ADVERSE EFFECT [None]
  - SUICIDE ATTEMPT [None]
